FAERS Safety Report 5556821-5 (Version None)
Quarter: 2007Q4

REPORT INFORMATION
  Report Type: 
  Country: None (occurrence: None)
  Receive Date: 20071211
  Receipt Date: 20071211
  Transmission Date: 20080405
  Serious: No
  Sender: FDA-Public Use
  Company Number: None

PATIENT

DRUGS (1)
  1. BETAMETHASONE (COMPOUNDED) [Suspect]
     Dosage: TWO SESSIONS

REACTIONS (9)
  - BEDRIDDEN [None]
  - DEPRESSION [None]
  - FEELING OF DESPAIR [None]
  - GAIT DISTURBANCE [None]
  - INFLUENZA LIKE ILLNESS [None]
  - INSOMNIA [None]
  - MALAISE [None]
  - NAUSEA [None]
  - PAIN [None]
